FAERS Safety Report 7945837-7 (Version None)
Quarter: 2011Q4

REPORT INFORMATION
  Report Type: 
  Country: None (occurrence: None)
  Receive Date: 20111129
  Receipt Date: 20111118
  Transmission Date: 20120403
  Serious: Yes (Hospitalization)
  Sender: FDA-Public Use
  Company Number: PHEH2011US009784

PATIENT
  Sex: Female
  Weight: 194 kg

DRUGS (16)
  1. PREDNISONE [Concomitant]
  2. CALTRATE PLUS [Concomitant]
  3. LAMISIL [Concomitant]
  4. SYNTHROID [Concomitant]
  5. COREG [Concomitant]
  6. MULTI-VITAMIN [Concomitant]
  7. LOVENOX [Concomitant]
  8. METROCREAM [Concomitant]
  9. HYZAAR [Concomitant]
  10. ILARIS [Suspect]
     Indication: CRYOPYRIN ASSOCIATED PERIODIC SYNDROME
     Dosage: 180 MG EVERY 8 WEEKS
     Route: 058
     Dates: start: 20110829
  11. COUMADIN [Concomitant]
  12. LIPITOR [Concomitant]
  13. TRICOR [Concomitant]
  14. IMDUR [Concomitant]
  15. LASIX [Concomitant]
  16. BYSTOLIC [Concomitant]

REACTIONS (1)
  - CHEST PAIN [None]
